FAERS Safety Report 14272543 (Version 2)
Quarter: 2018Q1

REPORT INFORMATION
  Report Type: Report from Study
  Country: JP (occurrence: JP)
  Receive Date: 20171212
  Receipt Date: 20180117
  Transmission Date: 20180508
  Serious: Yes (Hospitalization, Other)
  Sender: FDA-Public Use
  Company Number: PHJP2017JP020708

PATIENT
  Age: 60 Year
  Sex: Female

DRUGS (10)
  1. MAGMITT [Concomitant]
     Active Substance: MAGNESIUM OXIDE
     Indication: NON-SMALL CELL LUNG CANCER STAGE IV
     Dosage: 990 MG, UNK
     Route: 048
     Dates: end: 20170620
  2. NAUZELIN [Concomitant]
     Active Substance: DOMPERIDONE
     Indication: NON-SMALL CELL LUNG CANCER STAGE IV
     Dosage: 30 MG, UNK
     Route: 048
  3. OXYCONTIN [Concomitant]
     Active Substance: OXYCODONE HYDROCHLORIDE
     Indication: NON-SMALL CELL LUNG CANCER STAGE IV
     Dosage: 160 MG, UNK
     Route: 048
  4. LANSOPRAZOLE. [Concomitant]
     Active Substance: LANSOPRAZOLE
     Indication: NON-SMALL CELL LUNG CANCER STAGE IV
     Dosage: 15 MG, UNK
     Route: 048
  5. ZYKADIA [Suspect]
     Active Substance: CERITINIB
     Indication: NON-SMALL CELL LUNG CANCER STAGE IV
     Dosage: 750 MG, QD
     Route: 048
     Dates: start: 20170329, end: 20170620
  6. OXINORM (MINERALS\VITAMINS) [Concomitant]
     Active Substance: MINERALS\VITAMINS
     Indication: NON-SMALL CELL LUNG CANCER STAGE IV
     Dosage: 30 MG, UNK
     Route: 048
  7. CARVEDILOL. [Concomitant]
     Active Substance: CARVEDILOL
     Indication: NON-SMALL CELL LUNG CANCER STAGE IV
     Dosage: 5 MG, UNK
     Route: 048
  8. LOXOPROFEN [Concomitant]
     Active Substance: LOXOPROFEN
     Indication: NON-SMALL CELL LUNG CANCER STAGE IV
     Dosage: 180 MG, UNK
     Route: 048
  9. ALPRAZOLAM. [Concomitant]
     Active Substance: ALPRAZOLAM
     Indication: NON-SMALL CELL LUNG CANCER STAGE IV
     Dosage: 1.2 MG, UNK
     Route: 048
  10. BROTIZOLAM [Concomitant]
     Active Substance: BROTIZOLAM
     Indication: NON-SMALL CELL LUNG CANCER STAGE IV
     Dosage: 0.25 MG, UNK
     Route: 048

REACTIONS (6)
  - Cardiac tamponade [Unknown]
  - Non-small cell lung cancer stage IV [Unknown]
  - Pericardial effusion [Unknown]
  - Cardiac failure [Unknown]
  - Malignant neoplasm progression [Unknown]
  - Pericarditis [Recovered/Resolved]

NARRATIVE: CASE EVENT DATE: 20170606
